FAERS Safety Report 4591902-4 (Version None)
Quarter: 2005Q1

REPORT INFORMATION
  Report Type: 
  Country: None (occurrence: None)
  Receive Date: 20050222
  Receipt Date: 20050214
  Transmission Date: 20050727
  Serious: Yes (Hospitalization)
  Sender: FDA-Public Use
  Company Number: TPA2005A00170

PATIENT
  Age: 60 Year
  Sex: Female
  Weight: 108.8633 kg

DRUGS (10)
  1. ACTOS [Suspect]
     Indication: DIABETES MELLITUS NON-INSULIN-DEPENDENT
     Dosage: 45 MG, 1 IN 1 D, PER ORAL
     Route: 048
     Dates: start: 20030101
  2. GLUCOPAGE (METFORMIN HYDROCHLORIDE )(1000 MILLIGRAM) [Suspect]
     Indication: DIABETES MELLITUS NON-INSULIN-DEPENDENT
     Dosage: 1000 MG, 2 IN 1 D, PER ORAL
     Route: 048
  3. GLYBURIDE [Suspect]
     Indication: DIABETES MELLITUS NON-INSULIN-DEPENDENT
     Dosage: 5 MG, 2 IN 1 D, PER ORAL
     Route: 048
     Dates: start: 20030101
  4. PREDNISONE [Suspect]
     Indication: CHRONIC OBSTRUCTIVE AIRWAYS DISEASE EXACERBATED
     Dosage: TAPER AS DIRECTED, PER ORAL
     Route: 048
     Dates: start: 20040101, end: 20040101
  5. LIPITOR [Concomitant]
  6. ADVAIR (SERETIDE MITE) (INHALER) [Concomitant]
  7. ATROVENT (IPRATROPIUM BROMIDE ) (INHALANT) [Concomitant]
  8. ALBUTEROL (SALBUTAMOL ) (INHALANT) [Concomitant]
  9. NEBULIZERS (CLOPIDOGREL SULFATE) (75 MILLIGRAM) [Concomitant]
  10. BENCAR (OLMESARTAN MEDOXOMIL ) (20 MILLIGRAM) [Concomitant]

REACTIONS (6)
  - BRONCHITIS [None]
  - CHRONIC OBSTRUCTIVE AIRWAYS DISEASE EXACERBATED [None]
  - CORONARY ARTERY OCCLUSION [None]
  - DIABETES MELLITUS INADEQUATE CONTROL [None]
  - FEELING ABNORMAL [None]
  - HYPOGLYCAEMIA [None]
